FAERS Safety Report 8455929-4 (Version None)
Quarter: 2012Q2

REPORT INFORMATION
  Report Type: 
  Country: None (occurrence: None)
  Receive Date: 20120621
  Receipt Date: 20120615
  Transmission Date: 20120825
  Serious: Yes (Hospitalization)
  Sender: FDA-Public Use
  Company Number: GXKR2012DE002000

PATIENT
  Sex: Male
  Weight: 88 kg

DRUGS (2)
  1. RISPERIDONE [Suspect]
     Indication: AUTISM
     Dosage: 1.5 MG, QD
     Route: 048
     Dates: start: 20090101
  2. RISPERIDONE [Suspect]
     Dosage: 1 MG, QD

REACTIONS (2)
  - DIARRHOEA HAEMORRHAGIC [None]
  - COLITIS ULCERATIVE [None]
